FAERS Safety Report 13353307 (Version 2)
Quarter: 2017Q2

REPORT INFORMATION
  Report Type: Report from Study
  Country: IT (occurrence: IT)
  Receive Date: 20170321
  Receipt Date: 20170402
  Transmission Date: 20170830
  Serious: Yes (Other)
  Sender: FDA-Public Use
  Company Number: IT-ROCHE-1906945

PATIENT

DRUGS (14)
  1. INFLIXIMAB [Suspect]
     Active Substance: INFLIXIMAB
     Indication: CHOLANGITIS SCLEROSING
     Dosage: FOR 2-8 WEEKS
     Route: 042
  2. INFLIXIMAB [Suspect]
     Active Substance: INFLIXIMAB
     Indication: INFLAMMATORY BOWEL DISEASE
  3. METHYLPREDNISOLONE. [Suspect]
     Active Substance: METHYLPREDNISOLONE
     Indication: INFLAMMATORY BOWEL DISEASE
  4. MESALAZINE [Suspect]
     Active Substance: MESALAMINE
     Indication: CHOLANGITIS SCLEROSING
     Route: 065
  5. PREDNISONE. [Suspect]
     Active Substance: PREDNISONE
     Indication: CHOLANGITIS SCLEROSING
     Route: 065
  6. MYCOPHENOLATE MOFETIL. [Suspect]
     Active Substance: MYCOPHENOLATE MOFETIL
     Indication: CHOLANGITIS SCLEROSING
     Route: 065
  7. MYCOPHENOLATE MOFETIL. [Suspect]
     Active Substance: MYCOPHENOLATE MOFETIL
     Indication: INFLAMMATORY BOWEL DISEASE
  8. MESALAZINE [Suspect]
     Active Substance: MESALAMINE
     Indication: INFLAMMATORY BOWEL DISEASE
  9. PREDNISONE. [Suspect]
     Active Substance: PREDNISONE
     Indication: INFLAMMATORY BOWEL DISEASE
  10. AZATHIOPRINE. [Suspect]
     Active Substance: AZATHIOPRINE
     Indication: CHOLANGITIS SCLEROSING
     Route: 065
  11. AZATHIOPRINE. [Suspect]
     Active Substance: AZATHIOPRINE
     Indication: INFLAMMATORY BOWEL DISEASE
  12. METHYLPREDNISOLONE. [Suspect]
     Active Substance: METHYLPREDNISOLONE
     Indication: CHOLANGITIS SCLEROSING
     Dosage: FOR 4-52 WEEKS
     Route: 042
  13. ADALIMUMAB [Suspect]
     Active Substance: ADALIMUMAB
     Indication: INFLAMMATORY BOWEL DISEASE
  14. ADALIMUMAB [Suspect]
     Active Substance: ADALIMUMAB
     Indication: CHOLANGITIS SCLEROSING
     Dosage: 40-160 MG
     Route: 058

REACTIONS (5)
  - Cholangiocarcinoma [Unknown]
  - Gallbladder cancer [Unknown]
  - Colorectal cancer [Unknown]
  - Neoplasm malignant [Unknown]
  - Hepatocellular carcinoma [Unknown]
